FAERS Safety Report 9627588 (Version 1)
Quarter: 2013Q4

REPORT INFORMATION
  Report Type: Not Available
  Country: US (occurrence: US)
  Receive Date: 20131016
  Receipt Date: 20131016
  Transmission Date: 20140711
  Serious: No
  Sender: FDA-Public Use
  Company Number: US-LUNDBECK-DKLU1090095

PATIENT
  Sex: Female

DRUGS (11)
  1. SABRIL (FOR ORAL SOLUTION) [Suspect]
     Indication: INFANTILE SPASMS
     Dates: start: 20120503
  2. SABRIL (FOR ORAL SOLUTION) [Suspect]
  3. SABRIL (FOR ORAL SOLUTION) [Suspect]
  4. SABRIL (FOR ORAL SOLUTION) [Suspect]
     Dates: start: 20130306
  5. SABRIL (FOR ORAL SOLUTION) [Suspect]
  6. SABRIL (FOR ORAL SOLUTION) [Suspect]
  7. SABRIL (FOR ORAL SOLUTION) [Suspect]
  8. SABRIL (FOR ORAL SOLUTION) [Suspect]
  9. SABRIL (FOR ORAL SOLUTION) [Suspect]
     Dates: end: 20130401
  10. TOPAMAX [Concomitant]
     Indication: CONVULSION
  11. PREVACID [Concomitant]
     Indication: GASTROOESOPHAGEAL REFLUX DISEASE

REACTIONS (1)
  - Vomiting [Not Recovered/Not Resolved]
